FAERS Safety Report 9422802 (Version 3)
Quarter: 2013Q3

REPORT INFORMATION
  Report Type: Spontaneous
  Country: US (occurrence: US)
  Receive Date: 20130726
  Receipt Date: 20130910
  Transmission Date: 20140515
  Serious: Yes (Life-Threatening, Hospitalization, Other)
  Sender: FDA-Public Use
  Company Number: US-MERCK-1307USA013718

PATIENT
  Age: 78 Year
  Sex: Female

DRUGS (7)
  1. SAPHRIS [Suspect]
     Indication: BIPOLAR I DISORDER
     Dosage: 10 MG, BID
     Route: 060
     Dates: start: 2013
  2. SAPHRIS [Suspect]
     Indication: BIPOLAR I DISORDER
     Dosage: 5 MG, BID
     Dates: start: 20130423, end: 2013
  3. SAPHRIS [Suspect]
     Dosage: 5 MG, BID
     Dates: start: 2013, end: 20130517
  4. CYMBALTA [Concomitant]
     Indication: PAIN
     Dosage: DAILY DOSE: 30 MG
     Route: 048
     Dates: end: 20130517
  5. BIOTIN [Concomitant]
     Indication: ROUTINE HEALTH MAINTENANCE
     Dosage: DAILY DOSE: 5 G
     Route: 048
  6. ZOCOR [Concomitant]
     Dosage: DAILY DOSE: 20 MG
     Route: 048
  7. FOLIC ACID [Concomitant]
     Dosage: DAILY DOSE: 1G

REACTIONS (1)
  - Cerebral haemorrhage [Recovered/Resolved]
